FAERS Safety Report 17660868 (Version 5)
Quarter: 2020Q3

REPORT INFORMATION
  Report Type: Spontaneous
  Country: US (occurrence: US)
  Receive Date: 20200413
  Receipt Date: 20200701
  Transmission Date: 20201102
  Serious: No
  Sender: FDA-Public Use
  Company Number: US-SA-2020SA089921

PATIENT

DRUGS (2)
  1. LANTUS [Suspect]
     Active Substance: INSULIN GLARGINE
     Indication: TYPE 1 DIABETES MELLITUS
     Dosage: 20 IU, QD
     Route: 065
     Dates: start: 202001
  2. LANTUS [Suspect]
     Active Substance: INSULIN GLARGINE
     Dosage: DIAL IT 20 UNITS STOPPED AT 14 UNITS

REACTIONS (4)
  - Injection site pain [Unknown]
  - Device operational issue [Unknown]
  - Injection site bruising [Unknown]
  - Incorrect dose administered by device [Unknown]
